FAERS Safety Report 4844954-8 (Version None)
Quarter: 2005Q4

REPORT INFORMATION
  Report Type: 
  Country: None (occurrence: None)
  Receive Date: 20051128
  Receipt Date: 20051114
  Transmission Date: 20060501
  Serious: Yes (Disabling)
  Sender: FDA-Public Use
  Company Number: MEDI-0003743

PATIENT
  Age: 48 Year
  Sex: Male
  Weight: 185 kg

DRUGS (7)
  1. ETHYOL [Suspect]
     Indication: NEOPLASM MALIGNANT
     Dosage: 375 MG, INTRAVENOUS
     Route: 042
     Dates: start: 20050101, end: 20051013
  2. ETHYOL [Suspect]
     Indication: RADIOTHERAPY
     Dosage: 375 MG, INTRAVENOUS
     Route: 042
     Dates: start: 20050101, end: 20051013
  3. ETHYOL [Suspect]
     Indication: NEOPLASM MALIGNANT
     Dosage: 375 MG, INTRAVENOUS
     Route: 042
     Dates: start: 20051014
  4. ETHYOL [Suspect]
     Indication: RADIOTHERAPY
     Dosage: 375 MG, INTRAVENOUS
     Route: 042
     Dates: start: 20051014
  5. ZOFRAN [Concomitant]
  6. CORTICOSTEROIDS [Concomitant]
  7. PHYSIOLOGIC SERUM [Concomitant]

REACTIONS (7)
  - DIZZINESS [None]
  - DRUG INTOLERANCE [None]
  - HEADACHE [None]
  - MYALGIA [None]
  - NAUSEA [None]
  - PYREXIA [None]
  - VOMITING [None]
